FAERS Safety Report 25979060 (Version 2)
Quarter: 2025Q4

REPORT INFORMATION
  Report Type: Spontaneous
  Country: US (occurrence: US)
  Receive Date: 20251030
  Receipt Date: 20251125
  Transmission Date: 20260118
  Serious: Yes (Hospitalization, Other)
  Sender: CHEPLAPHARM
  Company Number: US-CHEPLA-2025012384

PATIENT
  Age: 37 Year
  Sex: Female

DRUGS (4)
  1. HYDROXYUREA [Suspect]
     Active Substance: HYDROXYUREA
     Indication: Neoplasm
     Dosage: DAILY DOSE: 1000 MILLIGRAM
     Route: 048
     Dates: start: 20250925, end: 20251009
  2. HYDROXYUREA [Suspect]
     Active Substance: HYDROXYUREA
     Indication: Neoplasm
     Dosage: DAY 7?DAILY DOSE: 1000 MILLIGRAM
     Route: 042
     Dates: start: 20251001, end: 20251006
  3. BLINATUMOMAB [Suspect]
     Active Substance: BLINATUMOMAB
     Dosage: DAY 2; DAY 7
     Dates: start: 20251001, end: 20251006
  4. FIRST BXN MOUTHWASH [Concomitant]
     Active Substance: DIPHENHYDRAMINE HYDROCHLORIDE\LIDOCAINE HYDROCHLORIDE\NYSTATIN
     Dates: start: 20251004

REACTIONS (5)
  - Mucosal inflammation [Recovering/Resolving]
  - Pharyngitis streptococcal [Not Recovered/Not Resolved]
  - Acute respiratory failure [Unknown]
  - Back pain [Unknown]
  - Pleural effusion [Unknown]

NARRATIVE: CASE EVENT DATE: 20251006
